FAERS Safety Report 6309230-5 (Version None)
Quarter: 2009Q3

REPORT INFORMATION
  Report Type: 
  Country: None (occurrence: None)
  Receive Date: 20090814
  Receipt Date: 20090804
  Transmission Date: 20100115
  Serious: Yes (Other)
  Sender: FDA-Public Use
  Company Number: IE-PFIZER INC-2009250491

PATIENT

DRUGS (1)
  1. NEURONTIN [Suspect]
     Indication: PAIN
     Dosage: 1200 MG, 1X/DAY

REACTIONS (1)
  - BLISTER [None]
